FAERS Safety Report 6346889-0 (Version None)
Quarter: 2009Q3

REPORT INFORMATION
  Report Type: 
  Country: None (occurrence: None)
  Receive Date: 20090908
  Receipt Date: 20090908
  Transmission Date: 20100115
  Serious: Yes (Hospitalization, Other)
  Sender: FDA-Public Use
  Company Number: None

PATIENT
  Sex: Female
  Weight: 58.9676 kg

DRUGS (1)
  1. EFUDEX [Suspect]
     Indication: ACTINIC KERATOSIS
     Dosage: 5% QHS APPLY TO FACE
     Dates: start: 20060120, end: 20060208

REACTIONS (6)
  - AUTOIMMUNE DISORDER [None]
  - BLISTER [None]
  - ERYTHEMA [None]
  - FURUNCLE [None]
  - SWELLING FACE [None]
  - WOUND SECRETION [None]
